FAERS Safety Report 20845053 (Version 2)
Quarter: 2022Q2

REPORT INFORMATION
  Report Type: Spontaneous
  Country: ES (occurrence: ES)
  Receive Date: 20220518
  Receipt Date: 20220525
  Transmission Date: 20220721
  Serious: Yes (Other)
  Sender: FDA-Public Use
  Company Number: ES-NOVARTISPH-NVSC2021ES228414

PATIENT
  Age: 56 Year
  Sex: Female

DRUGS (2)
  1. ADALIMUMAB [Suspect]
     Active Substance: ADALIMUMAB
     Indication: Crohn^s disease
     Dosage: 40 MG, BIW
     Route: 065
  2. INFLIXIMAB [Suspect]
     Active Substance: INFLIXIMAB
     Indication: Crohn^s disease
     Dosage: 5 MG/KG, QMO (1 MONTH, 5 MG/KG, MONTHLY)
     Route: 065

REACTIONS (9)
  - Rash pustular [Recovered/Resolved]
  - Staphylococcal skin infection [Unknown]
  - Staphylococcal infection [Unknown]
  - Product use issue [Unknown]
  - Off label use [Unknown]
  - Dermatitis psoriasiform [Unknown]
  - Paradoxical drug reaction [Recovered/Resolved]
  - Staphylococcus test positive [Recovered/Resolved]
  - Aseptic pustule [Recovered/Resolved]
